FAERS Safety Report 19654068 (Version 1)
Quarter: 2021Q3

REPORT INFORMATION
  Report Type: Spontaneous
  Country: US (occurrence: US)
  Receive Date: 20210804
  Receipt Date: 20210804
  Transmission Date: 20211014
  Serious: Yes (Other)
  Sender: FDA-Public Use
  Company Number: US-SUN PHARMACEUTICAL INDUSTRIES LTD-2021R1-306558

PATIENT
  Age: 28 Year
  Sex: Male

DRUGS (2)
  1. PREDNISONE. [Interacting]
     Active Substance: PREDNISONE
     Indication: CROHN^S DISEASE
     Dosage: 180 MILLIGRAM, UNK
     Route: 065
  2. BUPRENORPHINE/NALOXONE [Suspect]
     Active Substance: BUPRENORPHINE\NALOXONE
     Indication: DRUG USE DISORDER
     Dosage: 8/2 MILLIGRAM, TID
     Route: 060

REACTIONS (2)
  - Drug interaction [Unknown]
  - Drug screen negative [Unknown]
